FAERS Safety Report 9642649 (Version 1)
Quarter: 2013Q4

REPORT INFORMATION
  Report Type: Spontaneous
  Country: US (occurrence: US)
  Receive Date: 20131024
  Receipt Date: 20131024
  Transmission Date: 20140711
  Serious: No
  Sender: FDA-Public Use
  Company Number: US-PFIZER INC-2013301568

PATIENT
  Age: 8 Decade
  Sex: Male

DRUGS (3)
  1. ZYVOX [Suspect]
     Dosage: UNK
  2. SOLU-MEDROL [Concomitant]
  3. ALBUTEROL [Concomitant]

REACTIONS (4)
  - Hypertension [Recovered/Resolved]
  - Vertigo [Recovered/Resolved]
  - Headache [Recovered/Resolved]
  - Blood pressure increased [Recovered/Resolved]
